FAERS Safety Report 5007366-2 (Version None)
Quarter: 2006Q2

REPORT INFORMATION
  Report Type: 
  Country: None (occurrence: None)
  Receive Date: 20060517
  Receipt Date: 20060504
  Transmission Date: 20061013
  Serious: Yes (Hospitalization, Other)
  Sender: FDA-Public Use
  Company Number: 2005086030

PATIENT
  Age: 77 Year
  Sex: Male
  Weight: 81.6475 kg

DRUGS (4)
  1. CELEBREX [Suspect]
     Indication: ILL-DEFINED DISORDER
     Dosage: 200 MG (100 MG, 2 IN 1 D), ORAL
     Route: 048
     Dates: end: 20041201
  2. ZYRTEC [Concomitant]
  3. ZOCOR [Concomitant]
  4. PLAVIX [Concomitant]

REACTIONS (9)
  - DIPLOPIA [None]
  - EYELID PTOSIS [None]
  - HEADACHE [None]
  - IIIRD NERVE PARALYSIS [None]
  - ISCHAEMIA [None]
  - MICROANGIOPATHY [None]
  - OCULAR VASCULAR DISORDER [None]
  - PUPIL FIXED [None]
  - VISION BLURRED [None]
